FAERS Safety Report 4275861-X (Version None)
Quarter: 2004Q1

REPORT INFORMATION
  Report Type: 
  Country: None (occurrence: None)
  Receive Date: 20040121
  Receipt Date: 20030131
  Transmission Date: 20041129
  Serious: No
  Sender: FDA-Public Use
  Company Number: US-GLAXOSMITHKLINE-A0394874A

PATIENT
  Age: 34 Year
  Sex: Female
  Weight: 47.3 kg

DRUGS (3)
  1. VALTREX [Suspect]
     Route: 048
     Dates: start: 19970101, end: 20021201
  2. VALTREX [Suspect]
     Dosage: 500MG PER DAY
     Route: 048
     Dates: start: 20021201
  3. LEXAPRO [Suspect]
     Indication: DEPRESSION
     Dosage: 10MG PER DAY
     Route: 048
     Dates: start: 20021216

REACTIONS (2)
  - DRUG INTERACTION [None]
  - HERPES SIMPLEX [None]
